FAERS Safety Report 8889395 (Version 1)
Quarter: 2012Q4

REPORT INFORMATION
  Report Type: Spontaneous
  Country: US (occurrence: None)
  Receive Date: 20121102
  Receipt Date: 20121102
  Transmission Date: 20130627
  Serious: Yes (Hospitalization)
  Sender: FDA-Public Use
  Company Number: None

PATIENT
  Age: 41 Year
  Sex: Male
  Weight: 102 kg

DRUGS (2)
  1. OMNIPAQUE [Suspect]
     Indication: CT SCAN
     Route: 042
     Dates: start: 20120927, end: 20120927
  2. BARIUM SULFATE [Concomitant]

REACTIONS (3)
  - Chest discomfort [None]
  - Cough [None]
  - Urticaria [None]
